FAERS Safety Report 7809197-4 (Version None)
Quarter: 2011Q4

REPORT INFORMATION
  Report Type: 
  Country: None (occurrence: None)
  Receive Date: 20111012
  Receipt Date: 20111007
  Transmission Date: 20120403
  Serious: Yes (Other)
  Sender: FDA-Public Use
  Company Number: US-NAPPMUNDI-CAN-2011-0002261

PATIENT
  Age: 16 Year
  Sex: Male

DRUGS (2)
  1. PROZAC [Concomitant]
     Indication: DEPRESSED MOOD
     Dosage: 20 MG, UNK
     Route: 065
  2. OXYCONTIN [Suspect]
     Indication: PRODUCT USED FOR UNKNOWN INDICATION
     Route: 065

REACTIONS (1)
  - SUICIDE ATTEMPT [None]
